FAERS Safety Report 19498464 (Version 1)
Quarter: 2021Q3

REPORT INFORMATION
  Report Type: Spontaneous
  Country: GB (occurrence: GB)
  Receive Date: 20210706
  Receipt Date: 20210706
  Transmission Date: 20211014
  Serious: Yes (Other)
  Sender: FDA-Public Use
  Company Number: NVSC2021GB144782

PATIENT
  Age: 62 Year
  Sex: Female
  Weight: 83 kg

DRUGS (12)
  1. SACUBITRIL,VALSARTAN [Suspect]
     Active Substance: SACUBITRIL\VALSARTAN
     Indication: ILL-DEFINED DISORDER
     Dosage: UNK UNK, UNKNOWN
     Route: 065
     Dates: start: 20210623
  2. DOSULEPIN HYDROCHLORIDE [Concomitant]
     Active Substance: DOTHIEPIN HYDROCHLORIDE
     Indication: ILL-DEFINED DISORDER
     Dosage: UNK (6 TABLETS AT NIGHT)
     Route: 065
     Dates: start: 20201106
  3. LANSOPRAZOLE. [Concomitant]
     Active Substance: LANSOPRAZOLE
     Indication: ILL-DEFINED DISORDER
     Dosage: UNK (TAKE ONE ONCE DAILY)
     Route: 065
     Dates: start: 20210326
  4. ACIDEX [Concomitant]
     Indication: ILL-DEFINED DISORDER
     Dosage: UNK (10 ML PRN, 20 ML AT NIGHT)
     Route: 065
     Dates: start: 20201106
  5. RAMIPRIL. [Concomitant]
     Active Substance: RAMIPRIL
     Indication: ILL-DEFINED DISORDER
     Dosage: UNK (TAKE ONE DAILY)
     Route: 065
     Dates: start: 20210326
  6. FUROSEMIDE. [Concomitant]
     Active Substance: FUROSEMIDE
     Indication: ILL-DEFINED DISORDER
     Dosage: UNK (TAKE ONE EACH MORNING)
     Route: 065
     Dates: start: 20210326
  7. SACUBITRIL [Concomitant]
     Active Substance: SACUBITRIL
     Indication: ILL-DEFINED DISORDER
     Dosage: UNK (TAKE ONE TABLET TWICE DAILY)
     Route: 065
     Dates: start: 20210610, end: 20210623
  8. TRIAMCINOLONE ACETONIDE. [Concomitant]
     Active Substance: TRIAMCINOLONE ACETONIDE
     Indication: ILL-DEFINED DISORDER
     Dosage: UNK (ONE PUFF EACH NOSTRIL EVERY NIGHT)
     Route: 065
     Dates: start: 20201106
  9. BISOPROLOL [Concomitant]
     Active Substance: BISOPROLOL
     Indication: ILL-DEFINED DISORDER
     Dosage: UNK, (TAKE ONE IN THE MORNING) UNKNOWN
     Route: 065
     Dates: start: 20210326
  10. SPIRONOLACTONE. [Concomitant]
     Active Substance: SPIRONOLACTONE
     Indication: ILL-DEFINED DISORDER
     Dosage: UNK (TAKE ONE EVERY MORNING)
     Route: 065
     Dates: start: 20210421
  11. ATORVASTATIN [Concomitant]
     Active Substance: ATORVASTATIN
     Indication: ILL-DEFINED DISORDER
     Dosage: UNK (TAKE ONE EVERY EVENING)
     Route: 065
     Dates: start: 20210422
  12. TRAMADOL. [Concomitant]
     Active Substance: TRAMADOL
     Indication: ILL-DEFINED DISORDER
     Dosage: UNK (ONE OR TWO WHEN REQUIRED, UP TO MAXIMUM 4 TIMES)
     Route: 065
     Dates: start: 20201106

REACTIONS (1)
  - Diarrhoea [Recovering/Resolving]

NARRATIVE: CASE EVENT DATE: 20210623
